FAERS Safety Report 5217395-1 (Version None)
Quarter: 2006Q4

REPORT INFORMATION
  Report Type: 
  Country: None (occurrence: None)
  Receive Date: 20061130
  Receipt Date: 20060421
  Transmission Date: 20070319
  Serious: Yes (Hospitalization)
  Sender: FDA-Public Use
  Company Number: US_0509121863

PATIENT
  Sex: Female
  Weight: 122.4 kg

DRUGS (1)
  1. ZYPREXA [Suspect]
     Dosage: 2/D
     Dates: start: 20021001, end: 20030501

REACTIONS (3)
  - BLOOD CHOLESTEROL INCREASED [None]
  - DIABETES MELLITUS [None]
  - HYPERTENSION [None]
